FAERS Safety Report 4951262-3 (Version None)
Quarter: 2006Q1

REPORT INFORMATION
  Report Type: 
  Country: None (occurrence: None)
  Receive Date: 20060323
  Receipt Date: 20060314
  Transmission Date: 20060701
  Serious: Yes (Hospitalization)
  Sender: FDA-Public Use
  Company Number: CH-JNJFOC-20060303405

PATIENT
  Sex: Female

DRUGS (5)
  1. REMICADE [Suspect]
     Indication: RHEUMATOID ARTHRITIS
     Route: 042
  2. METHOTREXATE [Concomitant]
     Indication: RHEUMATOID ARTHRITIS
     Route: 030
  3. PONSTAN 500 [Concomitant]
     Indication: RHEUMATOID ARTHRITIS
     Dosage: 500 - 1500 MG
     Route: 048
  4. ATENOLOL [Concomitant]
     Indication: HYPERTENSION
     Route: 048
  5. PREDNISON 5 [Concomitant]
     Indication: RHEUMATOID ARTHRITIS
     Route: 048

REACTIONS (1)
  - NEPHROTIC SYNDROME [None]
